FAERS Safety Report 7302069 (Version 2)
Quarter: 2012Q4

REPORT INFORMATION
  Report Type: Report from Study
  Country: US (occurrence: US)
  Receive Date: 20100302
  Receipt Date: 20121016
  Transmission Date: 20130627
  Serious: Yes (Death, Other)
  Sender: FDA-Public Use
  Company Number: PHHO2009US16001

PATIENT
  Age: 50 Year
  Sex: Female
  Weight: 100.68 kg

DRUGS (9)
  1. ZOMETA [Suspect]
  2. AFINITOR [Suspect]
     Indication: BREAST CANCER METASTATIC
     Dosage: 10 mg, QD
     Route: 048
     Dates: start: 20091007
  3. BEVACIZUMAB [Suspect]
     Indication: BREAST CANCER METASTATIC
     Dosage: 10 mg/kg, UNK
     Route: 042
     Dates: start: 20091007
  4. PACLITAXEL [Suspect]
     Indication: BREAST CANCER METASTATIC
     Dosage: 90 mg/m2, UNK
     Route: 042
     Dates: start: 20091007
  5. OXYCODONE HYDROCHLORIDE [Concomitant]
  6. TRAMADOL [Concomitant]
  7. GLIMEPIRIDE [Concomitant]
  8. EMLA CREAM [Concomitant]
  9. PROCHLORPERAZINE MALEATE [Concomitant]

REACTIONS (3)
  - Influenza like illness [Unknown]
  - Diarrhoea [Fatal]
  - Dehydration [Fatal]
